FAERS Safety Report 4564301-9 (Version None)
Quarter: 2005Q1

REPORT INFORMATION
  Report Type: 
  Country: None (occurrence: None)
  Receive Date: 20050128
  Receipt Date: 20050125
  Transmission Date: 20050727
  Serious: Yes (Other)
  Sender: FDA-Public Use
  Company Number: NL-MERCK-0501NLD00030

PATIENT
  Age: 54 Year
  Sex: Female

DRUGS (5)
  1. VIOXX [Suspect]
     Indication: OSTEOARTHRITIS
     Route: 048
     Dates: start: 20010214, end: 20030904
  2. VENLAFAXINE HYDROCHLORIDE [Concomitant]
     Route: 048
     Dates: start: 20000101
  3. ATENOLOL [Concomitant]
     Route: 048
     Dates: start: 19970101
  4. CHLORTHALIDONE [Concomitant]
     Route: 048
     Dates: start: 19980101
  5. ACETAMINOPHEN [Concomitant]
     Route: 048

REACTIONS (6)
  - CHEST PAIN [None]
  - DYSPNOEA [None]
  - FLUID RETENTION [None]
  - HYPERHIDROSIS [None]
  - PARAESTHESIA [None]
  - TREMOR [None]
